FAERS Safety Report 8906138 (Version 1)
Quarter: 2012Q4

REPORT INFORMATION
  Report Type: 
  Country: US (occurrence: US)
  Receive Date: 20121110
  Receipt Date: 20121110
  Transmission Date: 20130627
  Serious: Yes (Other)
  Sender: FDA-Public Use
  Company Number: US-US-EMD SERONO, INC.-7172521

PATIENT
  Sex: Female

DRUGS (4)
  1. REBIF [Suspect]
     Indication: PRODUCT USED FOR UNKNOWN INDICATION
     Route: 058
     Dates: start: 20120507
  2. PERCOCET [Concomitant]
     Indication: PAIN
  3. IBUPROFEN [Concomitant]
     Indication: PREMEDICATION
  4. TYLENOL PM [Concomitant]
     Indication: PREMEDICATION

REACTIONS (6)
  - Endometriosis [Not Recovered/Not Resolved]
  - Uterine cyst [Not Recovered/Not Resolved]
  - Dehydration [Not Recovered/Not Resolved]
  - Muscle spasms [Not Recovered/Not Resolved]
  - Pain [Not Recovered/Not Resolved]
  - Musculoskeletal stiffness [Not Recovered/Not Resolved]
